FAERS Safety Report 11965471 (Version 1)
Quarter: 2016Q1

REPORT INFORMATION
  Report Type: Spontaneous
  Country: JP (occurrence: JP)
  Receive Date: 20160127
  Receipt Date: 20160127
  Transmission Date: 20160526
  Serious: Yes (Death, Hospitalization)
  Sender: FDA-Public Use
  Company Number: JP-SUN PHARMACEUTICAL INDUSTRIES LTD-2016R1-110237

PATIENT
  Age: 66 Year
  Sex: Male

DRUGS (1)
  1. DOCETAXEL. [Suspect]
     Active Substance: DOCETAXEL
     Indication: DISEASE RECURRENCE
     Dosage: 3 CYCLES
     Route: 065

REACTIONS (3)
  - Gastrointestinal perforation [Recovering/Resolving]
  - Condition aggravated [Unknown]
  - Death [Fatal]
